FAERS Safety Report 13473560 (Version 2)
Quarter: 2017Q2

REPORT INFORMATION
  Report Type: Spontaneous
  Country: BR (occurrence: BR)
  Receive Date: 20170424
  Receipt Date: 20170508
  Transmission Date: 20170830
  Serious: Yes (Hospitalization)
  Sender: FDA-Public Use
  Company Number: BR-CLARIS PHARMASERVICES-1065776

PATIENT
  Sex: Female

DRUGS (1)
  1. BUPIVACAINE HYDROCHLORIDE IN 8.25% DEXTROSE INJECTION, USP SPINAL [Suspect]
     Active Substance: BUPIVACAINE HYDROCHLORIDE
     Route: 065

REACTIONS (1)
  - Therapy non-responder [Unknown]
